FAERS Safety Report 14964936 (Version 1)
Quarter: 2018Q2

REPORT INFORMATION
  Report Type: Spontaneous
  Country: GB (occurrence: GB)
  Receive Date: 20180601
  Receipt Date: 20180601
  Transmission Date: 20180711
  Serious: Yes (Hospitalization, Other)
  Sender: FDA-Public Use
  Company Number: GB-MYLANLABS-2018M1036464

PATIENT
  Age: 10 Year
  Sex: Female

DRUGS (1)
  1. MERCAPTOPURINE. [Suspect]
     Active Substance: MERCAPTOPURINE
     Indication: ACUTE LYMPHOCYTIC LEUKAEMIA
     Route: 065

REACTIONS (5)
  - Hypoglycaemia [Recovered/Resolved]
  - Coagulopathy [Recovered/Resolved]
  - Hepatic encephalopathy [Recovered/Resolved]
  - Hepatotoxicity [Recovered/Resolved]
  - Cholestasis [Recovered/Resolved]
